FAERS Safety Report 7703632-8 (Version None)
Quarter: 2011Q3

REPORT INFORMATION
  Report Type: 
  Country: None (occurrence: None)
  Receive Date: 20110823
  Receipt Date: 20110818
  Transmission Date: 20111222
  Serious: Yes (Life-Threatening, Hospitalization, Disabling, Other)
  Sender: FDA-Public Use
  Company Number: CZ-SANOFI-AVENTIS-2011SA053064

PATIENT
  Age: 39 Year
  Sex: Female

DRUGS (8)
  1. CERUCAL [Concomitant]
     Dates: start: 20100708
  2. AVASTIN [Suspect]
     Route: 042
     Dates: start: 20100802
  3. XELODA [Suspect]
     Dosage: FREQUENCY: 500 MG (4-0-3)
     Route: 048
     Dates: start: 20100708
  4. DIAZEPAM [Concomitant]
     Dates: start: 20100708
  5. OXALIPLATIN [Suspect]
     Route: 065
     Dates: start: 20100708
  6. ZOFRAN [Concomitant]
     Dates: start: 20100708
  7. DITHIADEN [Concomitant]
     Dates: start: 20100802
  8. DEXAMETHASONE [Concomitant]
     Dates: start: 20100708

REACTIONS (2)
  - VENTRICULAR FIBRILLATION [None]
  - CEREBRAL ISCHAEMIA [None]
